FAERS Safety Report 24844473 (Version 1)
Quarter: 2025Q1

REPORT INFORMATION
  Report Type: Spontaneous
  Country: US (occurrence: US)
  Receive Date: 20250115
  Receipt Date: 20250115
  Transmission Date: 20250409
  Serious: No
  Sender: CSL BEHRING
  Company Number: US-BEH-2025191551

PATIENT
  Sex: Female

DRUGS (4)
  1. HIZENTRA [Suspect]
     Active Substance: HUMAN IMMUNOGLOBULIN G
     Indication: Hypogammaglobulinaemia
     Dosage: 8 G, QW
     Route: 058
     Dates: start: 202212
  2. HIZENTRA [Suspect]
     Active Substance: HUMAN IMMUNOGLOBULIN G
     Indication: Immunodeficiency common variable
  3. SIROLIMUS [Concomitant]
     Active Substance: SIROLIMUS
  4. ORENCIA [Concomitant]
     Active Substance: ABATACEPT

REACTIONS (2)
  - Respiratory syncytial virus infection [Recovered/Resolved]
  - Pyrexia [Recovered/Resolved]
